FAERS Safety Report 4774169-3 (Version None)
Quarter: 2005Q3

REPORT INFORMATION
  Report Type: 
  Country: None (occurrence: None)
  Receive Date: 20050914
  Receipt Date: 20041207
  Transmission Date: 20060218
  Serious: Yes (Other)
  Sender: FDA-Public Use
  Company Number: 163-20785-04120177

PATIENT
  Age: 70 Year
  Sex: Male

DRUGS (3)
  1. THALOMID [Suspect]
     Indication: RENAL CELL CARCINOMA STAGE UNSPECIFIED
     Dosage: 400 MG, DAILY, ORAL
     Route: 048
     Dates: start: 20030501, end: 20040901
  2. IL-2 (INTERLEUKIN-2) [Concomitant]
  3. LEUKINE [Concomitant]

REACTIONS (6)
  - DEEP VEIN THROMBOSIS [None]
  - FATIGUE [None]
  - HYPOAESTHESIA [None]
  - NAUSEA [None]
  - PARAESTHESIA [None]
  - RASH [None]
